FAERS Safety Report 8921723 (Version 3)
Quarter: 2013Q3

REPORT INFORMATION
  Report Type: Report from Study
  Country: US (occurrence: US)
  Receive Date: 20121121
  Receipt Date: 20130808
  Transmission Date: 20140515
  Serious: Yes (Hospitalization)
  Sender: FDA-Public Use
  Company Number: US-JNJFOC-20121109339

PATIENT
  Age: 14 Year
  Sex: Male
  Weight: 53.6 kg

DRUGS (16)
  1. REMICADE [Suspect]
     Indication: CROHN^S DISEASE
     Route: 042
     Dates: start: 20111020, end: 20120608
  2. HYDROCORTISONE [Concomitant]
     Route: 065
  3. CIMZIA [Concomitant]
     Dates: start: 20121113
  4. CIMZIA [Concomitant]
     Dates: start: 201206
  5. 6-MERCAPTOPURINE [Concomitant]
  6. CALCIUM [Concomitant]
  7. MULTIPLE VITAMIN [Concomitant]
  8. E VITAMIN [Concomitant]
  9. ALBUTEROL [Concomitant]
  10. OMEPRAZOLE [Concomitant]
  11. NEURONTIN [Concomitant]
  12. CLOBETASOL OINTMENT [Concomitant]
  13. DESONIDE [Concomitant]
  14. LOTRIMIN [Concomitant]
  15. FLUTICASONE [Concomitant]
  16. MIRALAX [Concomitant]

REACTIONS (1)
  - Crohn^s disease [Recovered/Resolved]
